FAERS Safety Report 8171274-9 (Version None)
Quarter: 2012Q1

REPORT INFORMATION
  Report Type: 
  Country: None (occurrence: None)
  Receive Date: 20120228
  Receipt Date: 20120224
  Transmission Date: 20120608
  Serious: Yes (Other)
  Sender: FDA-Public Use
  Company Number: US-PFIZER INC-2012050040

PATIENT
  Sex: Female
  Weight: 113 kg

DRUGS (28)
  1. LEVOTHYROXINE SODIUM [Concomitant]
     Indication: HYPOTHYROIDISM
     Dosage: 250 UG, DAILY
  2. PERPHENAZINE [Concomitant]
     Indication: PSYCHOTIC DISORDER
     Dosage: 4 MG, 2X/DAY
  3. TIZANIDINE [Concomitant]
     Indication: MUSCLE RELAXANT THERAPY
     Dosage: 4 MG, 3X/DAY
  4. NYSTATIN [Concomitant]
     Indication: FUNGAL INFECTION
     Dosage: UNK
  5. HYDROCODONE [Concomitant]
     Indication: BACK PAIN
     Dosage: 10 MG, 4X/DAY
  6. TRAMADOL [Concomitant]
     Indication: INSOMNIA
  7. ZANAFLEX [Concomitant]
     Indication: BACK PAIN
     Dosage: 4 MG, 3X/DAY
  8. GABAPENTIN [Concomitant]
     Indication: NEUROPATHY PERIPHERAL
     Dosage: 300 MG, 3X/DAY
     Dates: start: 20110101
  9. METOPROLOL [Concomitant]
     Indication: HORMONE THERAPY
     Dosage: 25 MG, DAILY
  10. NAPROXEN [Concomitant]
     Indication: PAIN
     Dosage: 250 MG, 2X/DAY
  11. IMITREX [Concomitant]
     Indication: MIGRAINE
     Dosage: 20 MG, DAILY
  12. ALBUTEROL SULFATE [Concomitant]
     Indication: CHRONIC OBSTRUCTIVE PULMONARY DISEASE
     Dosage: UNK, AS NEEDED
  13. LYRICA [Suspect]
     Indication: NEUROPATHY PERIPHERAL
     Dosage: 225 MG, 2X/DAY
     Route: 048
  14. TRAMADOL [Concomitant]
     Indication: NEUROPATHY PERIPHERAL
  15. TEGRETOL [Concomitant]
     Indication: INSOMNIA
     Dosage: 200MG ONE TABLET ORALLY DAILY IN MORNING AND THREE TABLES AT BED TIME
  16. SERTRALINE HYDROCHLORIDE [Concomitant]
     Dosage: 200 MG, 1X/DAY
     Route: 048
  17. DICLOFENAC [Concomitant]
     Indication: OSTEOARTHRITIS
     Dosage: 75 MG, 2X/DAY
  18. CETIRIZINE [Concomitant]
     Dosage: 10 MG, DAILY
  19. ESTRADIOL [Concomitant]
     Indication: HORMONE THERAPY
     Dosage: 0.5 MG, DAILY
  20. HYDROXYZINE [Concomitant]
     Indication: ANXIETY DISORDER
     Dosage: 25 MG, 4X/DAY
  21. CLONAZEPAM [Concomitant]
     Indication: ANXIETY DISORDER
     Dosage: 1 MG, 4X/DAY
  22. TRAMADOL [Concomitant]
     Indication: OSTEOARTHRITIS
     Dosage: 300 MG, DAILY
     Route: 048
  23. TRAMADOL [Concomitant]
     Indication: PAIN
  24. PROMETRIUM [Concomitant]
     Indication: HORMONE THERAPY
     Dosage: 200 MG, DAILY
     Route: 048
  25. FLONASE [Concomitant]
     Dosage: 100 UG, 1X/DAY
  26. SIMVASTATIN [Concomitant]
     Indication: BLOOD CHOLESTEROL INCREASED
     Dosage: 25 MG, DAILY
  27. SENNA [Concomitant]
     Indication: CONSTIPATION
     Dosage: 17.2 MG, 1X/DAY
     Route: 048
  28. NYSTOP [Concomitant]
     Indication: FUNGAL INFECTION
     Dosage: UNK

REACTIONS (2)
  - PNEUMONITIS [None]
  - BRONCHITIS [None]
